FAERS Safety Report 18462660 (Version 1)
Quarter: 2020Q4

REPORT INFORMATION
  Report Type: Spontaneous
  Country: US (occurrence: US)
  Receive Date: 20201104
  Receipt Date: 20201104
  Transmission Date: 20210114
  Serious: Yes (Other)
  Sender: FDA-Public Use
  Company Number: US-PFIZER INC-2020424036

PATIENT
  Age: 69 Year
  Sex: Female
  Weight: 63.96 kg

DRUGS (1)
  1. LYRICA [Suspect]
     Active Substance: PREGABALIN
     Indication: NERVE INJURY
     Dosage: 75 MG, 2X/DAY
     Route: 048

REACTIONS (14)
  - Cervical spinal stenosis [Unknown]
  - Feeling abnormal [Unknown]
  - Haemorrhage [Unknown]
  - Insomnia [Unknown]
  - Contusion [Unknown]
  - Musculoskeletal discomfort [Unknown]
  - Pain [Unknown]
  - Chronic obstructive pulmonary disease [Unknown]
  - Arthritis [Unknown]
  - Asthma [Unknown]
  - Intervertebral disc degeneration [Unknown]
  - Intervertebral disc protrusion [Unknown]
  - Intentional dose omission [Unknown]
  - Factor VIII deficiency [Unknown]
